FAERS Safety Report 8300492 (Version 5)
Quarter: 2015Q4

REPORT INFORMATION
  Report Type: Spontaneous
  Country: US (occurrence: US)
  Receive Date: 20111219
  Receipt Date: 20151215
  Transmission Date: 20160305
  Serious: Yes (Hospitalization, Other)
  Sender: FDA-Public Use
  Company Number: US-ASTRAZENECA-2010SE28051

PATIENT
  Age: 29169 Day
  Sex: Male
  Weight: 95.7 kg

DRUGS (44)
  1. CRESTOR [Suspect]
     Active Substance: ROSUVASTATIN CALCIUM
     Indication: CARDIAC DISORDER
     Route: 048
     Dates: start: 2005
  2. CRESTOR [Suspect]
     Active Substance: ROSUVASTATIN CALCIUM
     Indication: CARDIAC DISORDER
     Route: 048
     Dates: end: 20110608
  3. ALLEGRA [Concomitant]
     Active Substance: FEXOFENADINE HYDROCHLORIDE
  4. IMDUR [Concomitant]
     Active Substance: ISOSORBIDE MONONITRATE
     Indication: CARDIAC DISORDER
  5. NITROGLYCERIN. [Concomitant]
     Active Substance: NITROGLYCERIN
     Indication: CARDIAC DISORDER
     Dosage: PRN
  6. VITAMIN B NOS [Concomitant]
     Active Substance: VITAMIN B
  7. NEXIUM [Suspect]
     Active Substance: ESOMEPRAZOLE MAGNESIUM
     Indication: GASTROOESOPHAGEAL REFLUX DISEASE
     Route: 048
     Dates: start: 2010
  8. CRESTOR [Suspect]
     Active Substance: ROSUVASTATIN CALCIUM
     Indication: CARDIAC DISORDER
     Route: 048
     Dates: start: 20091228, end: 20100526
  9. LASIX [Concomitant]
     Active Substance: FUROSEMIDE
  10. VALIUM [Concomitant]
     Active Substance: DIAZEPAM
     Indication: PSYCHOTIC DISORDER
     Dates: start: 1979
  11. ZETIA [Concomitant]
     Active Substance: EZETIMIBE
     Indication: ILL-DEFINED DISORDER
     Dates: end: 20110429
  12. CRESTOR [Suspect]
     Active Substance: ROSUVASTATIN CALCIUM
     Indication: CARDIAC DISORDER
     Route: 048
     Dates: start: 201005
  13. ISOSORBIDE MONONITRATE. [Concomitant]
     Active Substance: ISOSORBIDE MONONITRATE
     Route: 048
  14. ASPIRIN EC [Concomitant]
     Active Substance: ASPIRIN
  15. NIASPAN [Concomitant]
     Active Substance: NIACIN
     Dates: start: 20070608, end: 20100903
  16. VITAMIN D [Concomitant]
     Active Substance: CHOLECALCIFEROL
     Dosage: 5000 U ONCE MONTHLY
  17. NEXIUM [Suspect]
     Active Substance: ESOMEPRAZOLE MAGNESIUM
     Indication: GASTROOESOPHAGEAL REFLUX DISEASE
     Route: 048
  18. CRESTOR [Suspect]
     Active Substance: ROSUVASTATIN CALCIUM
     Indication: CARDIAC DISORDER
     Route: 048
     Dates: end: 20110427
  19. COREG CR [Concomitant]
     Active Substance: CARVEDILOL PHOSPHATE
     Indication: CARDIAC DISORDER
     Dates: start: 2005
  20. DIOVAN [Concomitant]
     Active Substance: VALSARTAN
  21. IMDUR [Concomitant]
     Active Substance: ISOSORBIDE MONONITRATE
     Indication: CARDIAC DISORDER
     Dates: start: 2005
  22. LASIX [Concomitant]
     Active Substance: FUROSEMIDE
     Dosage: 20 MG  AS DIRECTED THREE TIMES TTS
  23. LIPITOR [Concomitant]
     Active Substance: ATORVASTATIN CALCIUM
     Dates: start: 20070918, end: 20071121
  24. DONEPEZIL. [Concomitant]
     Active Substance: DONEPEZIL
     Indication: MEMORY IMPAIRMENT
     Route: 048
  25. CRESTOR [Suspect]
     Active Substance: ROSUVASTATIN CALCIUM
     Indication: CARDIAC DISORDER
     Route: 048
     Dates: start: 20100526, end: 20100526
  26. CITRUCEL [Concomitant]
     Active Substance: METHYLCELLULOSE (4000 MPA.S)
     Dosage: AS NEEDED
  27. LASIX [Concomitant]
     Active Substance: FUROSEMIDE
     Dates: start: 20150526
  28. ZETIA [Concomitant]
     Active Substance: EZETIMIBE
     Indication: ILL-DEFINED DISORDER
     Dates: start: 2008
  29. CRESTOR [Suspect]
     Active Substance: ROSUVASTATIN CALCIUM
     Indication: CARDIAC DISORDER
     Route: 048
  30. ALLOPURINOL. [Concomitant]
     Active Substance: ALLOPURINOL
     Indication: LIVER DISORDER
  31. ALLOPURINOL. [Concomitant]
     Active Substance: ALLOPURINOL
     Indication: LIVER DISORDER
     Dates: start: 1997
  32. NIASPAN [Concomitant]
     Active Substance: NIACIN
     Dates: start: 20100903
  33. TYLENOL [Concomitant]
     Active Substance: ACETAMINOPHEN
     Indication: DISCOMFORT
     Dosage: 650 MG EVERY 4 HOURS AS NEEDED
  34. VYTORIN [Concomitant]
     Active Substance: EZETIMIBE\SIMVASTATIN
     Dosage: 10-40
     Route: 048
  35. CRESTOR [Suspect]
     Active Substance: ROSUVASTATIN CALCIUM
     Indication: CARDIAC DISORDER
     Route: 048
     Dates: start: 20091228, end: 20101223
  36. RANEXA [Concomitant]
     Active Substance: RANOLAZINE
     Route: 048
     Dates: start: 20091228, end: 20101223
  37. FINASTERIDE. [Concomitant]
     Active Substance: FINASTERIDE
  38. INSPRA [Concomitant]
     Active Substance: EPLERENONE
  39. DYMISTA SPRAY [Concomitant]
     Indication: COUGH
     Dosage: 13050
     Dates: start: 2010
  40. CRESTOR [Suspect]
     Active Substance: ROSUVASTATIN CALCIUM
     Indication: CARDIAC DISORDER
     Route: 048
     Dates: start: 20100526, end: 20100611
  41. CRESTOR [Suspect]
     Active Substance: ROSUVASTATIN CALCIUM
     Indication: CARDIAC DISORDER
     Route: 048
     Dates: start: 20100101, end: 201005
  42. CRESTOR [Suspect]
     Active Substance: ROSUVASTATIN CALCIUM
     Indication: CARDIAC DISORDER
     Route: 048
     Dates: start: 20100611, end: 20110427
  43. CRESTOR [Suspect]
     Active Substance: ROSUVASTATIN CALCIUM
     Indication: CARDIAC DISORDER
     Route: 048
  44. PLAVIX [Concomitant]
     Active Substance: CLOPIDOGREL BISULFATE
     Indication: PROPHYLAXIS
     Dates: start: 1997

REACTIONS (32)
  - Cerebrovascular accident [Unknown]
  - Hyperlipidaemia [Unknown]
  - Renal failure [Recovering/Resolving]
  - Cardiac disorder [Unknown]
  - Weight increased [Unknown]
  - Influenza [Unknown]
  - Low density lipoprotein increased [Unknown]
  - Dementia [Unknown]
  - Peripheral swelling [Unknown]
  - Off label use [Unknown]
  - Cardiac failure chronic [Unknown]
  - Hiatus hernia [Unknown]
  - Atrioventricular block complete [Unknown]
  - Hypercholesterolaemia [Unknown]
  - Aortic aneurysm [Unknown]
  - Coronary artery disease [Unknown]
  - Dehydration [Unknown]
  - Dyslexia [Unknown]
  - Fluid retention [Unknown]
  - Product use issue [Unknown]
  - Fall [Unknown]
  - Angina pectoris [Unknown]
  - Sinus node dysfunction [Unknown]
  - Neurodegenerative disorder [Unknown]
  - Fatigue [Unknown]
  - Ischaemic cardiomyopathy [Unknown]
  - Hypertension [Unknown]
  - Carotid artery disease [Unknown]
  - Asthenia [Unknown]
  - Memory impairment [Unknown]
  - Blood growth hormone increased [Unknown]
  - Nipple swelling [Unknown]

NARRATIVE: CASE EVENT DATE: 20100205
